FAERS Safety Report 4714821-9 (Version None)
Quarter: 2005Q3

REPORT INFORMATION
  Report Type: 
  Country: None (occurrence: None)
  Receive Date: 20050714
  Receipt Date: 20050714
  Transmission Date: 20060218
  Serious: Yes (Other)
  Sender: FDA-Public Use
  Company Number: None

PATIENT
  Sex: Female
  Weight: 22.7 kg

DRUGS (5)
  1. METHOTREXATE [Suspect]
     Indication: ACUTE LYMPHOCYTIC LEUKAEMIA
     Dosage: 12 MG GIVEN ON 6/23/2005 (DAY 8)
     Route: 037
     Dates: start: 20050623, end: 20050623
  2. VINCRISTINE [Suspect]
     Dosage: 1.3MG GIVEN ON 6/17/2005 (DAY 1) AND 6/23/2005 (DAY 8)
     Route: 042
     Dates: start: 20050617, end: 20050623
  3. DEXAMETHASONE [Suspect]
     Dosage: 3 MG EVERY DAY SINCE 6/17/2005 45MG TOTAL
     Route: 048
     Dates: start: 20050617, end: 20050701
  4. PEG ASPARAGINASE [Suspect]
     Dosage: 2250 IU, GIVEN ON 6/20/2005 (DAY 4)
     Route: 030
     Dates: start: 20050620, end: 20050620
  5. CYTARABINE [Suspect]
     Dosage: 70MG, GIVEN ON 6/17/2005 (DAY 1)
     Route: 037
     Dates: start: 20050617, end: 20050617

REACTIONS (13)
  - ABNORMAL BEHAVIOUR [None]
  - ASTHENIA [None]
  - CONVULSION [None]
  - DEPRESSED LEVEL OF CONSCIOUSNESS [None]
  - ELECTROENCEPHALOGRAM ABNORMAL [None]
  - ENCEPHALOPATHY [None]
  - FULL BLOOD COUNT ABNORMAL [None]
  - HYPOTONIA [None]
  - LOSS OF CONSCIOUSNESS [None]
  - MENTAL STATUS CHANGES [None]
  - NUCLEAR MAGNETIC RESONANCE IMAGING BRAIN ABNORMAL [None]
  - OXYGEN SATURATION DECREASED [None]
  - RESPIRATORY DEPRESSION [None]
